FAERS Safety Report 8371487-7 (Version None)
Quarter: 2012Q2

REPORT INFORMATION
  Report Type: 
  Country: None (occurrence: None)
  Receive Date: 20120518
  Receipt Date: 20120511
  Transmission Date: 20120825
  Serious: Yes (Other)
  Sender: FDA-Public Use
  Company Number: CA-ASTRAZENECA-2012SE30471

PATIENT
  Age: 58 Year
  Sex: Male

DRUGS (3)
  1. TYLENOL [Concomitant]
     Indication: MUSCLE RELAXANT THERAPY
  2. CYCLOBENZAPRINE [Concomitant]
     Indication: MUSCLE RELAXANT THERAPY
  3. CRESTOR [Suspect]
     Route: 048

REACTIONS (2)
  - BACK PAIN [None]
  - ROAD TRAFFIC ACCIDENT [None]
